FAERS Safety Report 17450064 (Version 1)
Quarter: 2020Q1

REPORT INFORMATION
  Report Type: Spontaneous
  Country: FR (occurrence: FR)
  Receive Date: 20200224
  Receipt Date: 20200224
  Transmission Date: 20200409
  Serious: Yes (Hospitalization)
  Sender: FDA-Public Use
  Company Number: FR-ACCORD-173382

PATIENT
  Age: 67 Year
  Sex: Female
  Weight: 72 kg

DRUGS (14)
  1. ATROPINE SULFATE AGUETTANT [Concomitant]
     Active Substance: ATROPINE SULFATE
     Indication: PREMEDICATION
     Dosage: STRENGTH: 0.25 MG / ML
     Route: 042
     Dates: start: 20200103, end: 20200103
  2. POLARAMINE [Concomitant]
     Active Substance: DEXCHLORPHENIRAMINE MALEATE
     Indication: PREMEDICATION
     Dosage: STRENGTH 5 MG/1 ML
     Route: 042
     Dates: start: 20200103, end: 20200103
  3. SODIUM LEVOFOLINATE MEDAC [Concomitant]
     Active Substance: LEVOLEUCOVORIN DISODIUM
     Indication: PREMEDICATION
     Route: 042
     Dates: start: 20200121, end: 20200121
  4. IRINOTECAN ACCORD [Suspect]
     Active Substance: IRINOTECAN
     Indication: COLON CANCER STAGE 0
     Route: 041
     Dates: start: 20200121, end: 20200121
  5. ATROPINE SULFATE AGUETTANT [Concomitant]
     Active Substance: ATROPINE SULFATE
     Indication: PREMEDICATION
     Dosage: STRENGTH: 0.25 MG / ML
     Route: 042
     Dates: start: 20200121, end: 20200121
  6. POLARAMINE [Concomitant]
     Active Substance: DEXCHLORPHENIRAMINE MALEATE
     Indication: PREMEDICATION
     Dosage: STRENGTH 5 MG/1 ML
     Route: 042
     Dates: start: 20200121, end: 20200121
  7. IRINOTECAN ACCORD [Suspect]
     Active Substance: IRINOTECAN
     Indication: ADENOCARCINOMA OF COLON
     Route: 041
     Dates: start: 20200103, end: 20200103
  8. OXALIPLATIN ACCORD [Concomitant]
     Active Substance: OXALIPLATIN
     Indication: ADENOCARCINOMA OF COLON
     Dosage: STRENGTH 5 MG/ML
     Route: 041
     Dates: start: 20200103, end: 20200103
  9. ONDANSETRON ACCORD [Concomitant]
     Active Substance: ONDANSETRON
     Indication: PREMEDICATION
     Route: 042
     Dates: start: 20200121, end: 20200121
  10. SODIUM LEVOFOLINATE MEDAC [Concomitant]
     Active Substance: LEVOLEUCOVORIN DISODIUM
     Indication: PREMEDICATION
     Route: 042
     Dates: start: 20200103, end: 20200103
  11. OXALIPLATIN ACCORD [Concomitant]
     Active Substance: OXALIPLATIN
     Indication: COLON CANCER STAGE 0
     Dosage: STRENGTH 5 MG/ML
     Route: 041
     Dates: start: 20200121, end: 20200121
  12. METHYLPREDNISOLONE MYLAN [Concomitant]
     Active Substance: METHYLPREDNISOLONE
     Indication: PREMEDICATION
     Route: 042
     Dates: start: 20200103, end: 20200103
  13. ONDANSETRON ACCORD [Concomitant]
     Active Substance: ONDANSETRON
     Indication: PREMEDICATION
     Route: 042
     Dates: start: 20200103, end: 20200103
  14. METHYLPREDNISOLONE MYLAN [Concomitant]
     Active Substance: METHYLPREDNISOLONE
     Indication: PREMEDICATION
     Route: 042
     Dates: start: 20200121, end: 20200121

REACTIONS (4)
  - Nausea [Recovered/Resolved]
  - Infusion related reaction [Recovered/Resolved]
  - Abdominal pain [Recovered/Resolved]
  - Headache [Recovered/Resolved]

NARRATIVE: CASE EVENT DATE: 20200103
